FAERS Safety Report 10014829 (Version 2)
Quarter: 2017Q3

REPORT INFORMATION
  Report Type: Spontaneous
  Country: US (occurrence: US)
  Receive Date: 20140317
  Receipt Date: 20170711
  Transmission Date: 20171127
  Serious: Yes (Death, Hospitalization)
  Sender: FDA-Public Use
  Company Number: PHEH2014US004988

PATIENT
  Sex: Female
  Weight: 72.57 kg

DRUGS (1)
  1. AFINITOR [Suspect]
     Active Substance: EVEROLIMUS
     Indication: BREAST CANCER METASTATIC
     Route: 065

REACTIONS (2)
  - Pneumothorax [Fatal]
  - Dyspnoea [Fatal]

NARRATIVE: CASE EVENT DATE: 2013
